FAERS Safety Report 8362894-7 (Version None)
Quarter: 2012Q1

REPORT INFORMATION
  Report Type: 
  Country: None (occurrence: None)
  Receive Date: 20120323
  Receipt Date: 20110603
  Transmission Date: 20120608
  Serious: Yes (Hospitalization)
  Sender: FDA-Public Use
  Company Number: 163-21880-11042763

PATIENT
  Age: 72 Year
  Sex: Female
  Weight: 71.2147 kg

DRUGS (21)
  1. AMBIEN [Concomitant]
  2. ACYCLOVIR [Concomitant]
  3. PRILOSEC [Concomitant]
  4. GABAPENTIN [Concomitant]
  5. REVLIMID [Suspect]
     Indication: MULTIPLE MYELOMA
     Dosage: 10 MG, 1 IN 1 D, PO
     Route: 048
     Dates: start: 20110126, end: 20110101
  6. POTASSIUM CHLORIDE [Concomitant]
  7. CALCIUM CARBONATE [Concomitant]
  8. MAGNESIUM (MAGNESIUM) [Concomitant]
  9. VITAMIN D [Concomitant]
  10. DIGOXIN [Concomitant]
  11. ZOMETA [Concomitant]
  12. ASPIRIN [Concomitant]
  13. AMIODARONE HCL [Suspect]
     Indication: ATRIAL FIBRILLATION
     Dosage: 100 MG, DAILY
  14. PRILOSEC [Concomitant]
  15. BACTRIM DS [Concomitant]
  16. FLECAINIDE ACETATE [Concomitant]
  17. AUGMENTIN '125' [Concomitant]
  18. LEVAQUIN [Concomitant]
  19. MULTIVITAMIN [Concomitant]
  20. PROPINE [Concomitant]
  21. QVAR [Concomitant]

REACTIONS (2)
  - RASH [None]
  - ALVEOLITIS ALLERGIC [None]
